FAERS Safety Report 9719862 (Version 4)
Quarter: 2014Q1

REPORT INFORMATION
  Report Type: Report from Study
  Country: CA (occurrence: CA)
  Receive Date: 20131128
  Receipt Date: 20140303
  Transmission Date: 20141002
  Serious: Yes (Hospitalization, Other)
  Sender: FDA-Public Use
  Company Number: CA-JNJFOC-20131114163

PATIENT
  Age: 27 Year
  Sex: Female
  Weight: 65 kg

DRUGS (10)
  1. REMICADE [Suspect]
     Indication: CROHN^S DISEASE
     Route: 042
     Dates: start: 20130924
  2. REMICADE [Suspect]
     Indication: CROHN^S DISEASE
     Route: 042
     Dates: start: 201306
  3. IRON INFUSION [Suspect]
     Indication: PRODUCT USED FOR UNKNOWN INDICATION
     Route: 065
     Dates: start: 20131118
  4. DILAUDID [Concomitant]
     Route: 065
  5. GRAVOL [Concomitant]
     Route: 065
  6. ZOFRAN [Concomitant]
     Route: 065
  7. TPN [Concomitant]
     Route: 065
  8. TARGIN [Concomitant]
     Route: 065
  9. VITAMIN D [Concomitant]
     Route: 065
  10. PREVACID [Concomitant]
     Route: 065

REACTIONS (8)
  - Unevaluable event [Recovering/Resolving]
  - Enterostomy closure [Not Recovered/Not Resolved]
  - Intestinal resection [Recovering/Resolving]
  - Pyrexia [Recovered/Resolved]
  - Chills [Recovered/Resolved]
  - Anaphylactic reaction [Unknown]
  - Arthralgia [Recovered/Resolved]
  - Rash [Unknown]
